FAERS Safety Report 10098882 (Version 3)
Quarter: 2014Q4

REPORT INFORMATION
  Report Type: Spontaneous
  Country: US (occurrence: US)
  Receive Date: 20140423
  Receipt Date: 20141001
  Transmission Date: 20150528
  Serious: Yes (Other)
  Sender: FDA-Public Use
  Company Number: US-SA-2014SA049514

PATIENT
  Sex: Male

DRUGS (7)
  1. DOXYCYCLINE. [Concomitant]
     Active Substance: DOXYCYCLINE
  2. ASA [Concomitant]
     Active Substance: ASPIRIN
  3. BETA BLOCKING AGENTS [Concomitant]
     Active Substance: UNSPECIFIED INGREDIENT
  4. MULTAQ [Suspect]
     Active Substance: DRONEDARONE
     Indication: ATRIAL FIBRILLATION
     Route: 065
     Dates: end: 20140131
  5. XARELTO [Concomitant]
     Active Substance: RIVAROXABAN
  6. LOSARTAN [Concomitant]
     Active Substance: LOSARTAN
  7. MULTAQ [Suspect]
     Active Substance: DRONEDARONE
     Indication: ATRIAL FIBRILLATION
     Route: 065
     Dates: end: 20140131

REACTIONS (3)
  - Ventricular tachycardia [Recovered/Resolved]
  - Ischaemia [Recovered/Resolved]
  - Heart valve replacement [Unknown]

NARRATIVE: CASE EVENT DATE: 20140131
